FAERS Safety Report 6676420-1 (Version None)
Quarter: 2010Q2

REPORT INFORMATION
  Report Type: 
  Country: None (occurrence: None)
  Receive Date: 20100412
  Receipt Date: 20100331
  Transmission Date: 20101027
  Serious: Yes (Other)
  Sender: FDA-Public Use
  Company Number: PHHY2010US20675

PATIENT
  Sex: Female

DRUGS (2)
  1. ELIDEL [Suspect]
  2. CORTISONE [Concomitant]

REACTIONS (7)
  - HEADACHE [None]
  - HEAT RASH [None]
  - HYPERSENSITIVITY [None]
  - OROPHARYNGEAL PAIN [None]
  - PRURITUS [None]
  - RASH ERYTHEMATOUS [None]
  - THROAT TIGHTNESS [None]
